FAERS Safety Report 6355756-8 (Version None)
Quarter: 2009Q3

REPORT INFORMATION
  Report Type: 
  Country: None (occurrence: None)
  Receive Date: 20090911
  Receipt Date: 20090911
  Transmission Date: 20100115
  Serious: Yes (Other)
  Sender: FDA-Public Use
  Company Number: None

PATIENT
  Sex: Female
  Weight: 68.0396 kg

DRUGS (3)
  1. ZOLPIDEM TARTRATE [Suspect]
     Indication: INSOMNIA
     Dosage: 10 MG 1 TIME (6-8 (1/2 PILL) 5 PILLS BETWEEN 6-9 + 6-19 + 6-20-09, 6-21 + 6-22-09)
     Dates: start: 20090620
  2. ZOLPIDEM TARTRATE [Suspect]
     Indication: INSOMNIA
     Dosage: 10 MG 1 TIME (6-8 (1/2 PILL) 5 PILLS BETWEEN 6-9 + 6-19 + 6-20-09, 6-21 + 6-22-09)
     Dates: start: 20090621
  3. ZOLPIDEM TARTRATE [Suspect]
     Indication: INSOMNIA
     Dosage: 10 MG 1 TIME (6-8 (1/2 PILL) 5 PILLS BETWEEN 6-9 + 6-19 + 6-20-09, 6-21 + 6-22-09)
     Dates: start: 20090622

REACTIONS (1)
  - SLEEP-RELATED EATING DISORDER [None]
